FAERS Safety Report 21433961 (Version 2)
Quarter: 2022Q4

REPORT INFORMATION
  Report Type: Report from Study
  Country: US (occurrence: US)
  Receive Date: 20221010
  Receipt Date: 20221117
  Transmission Date: 20230113
  Serious: Yes (Hospitalization, Other)
  Sender: FDA-Public Use
  Company Number: US-NOVARTISPH-NVSC2021US181396

PATIENT
  Age: 1 Year
  Sex: Male
  Weight: 11.4 kg

DRUGS (12)
  1. ZOLGENSMA [Suspect]
     Active Substance: ONASEMNOGENE ABEPARVOVEC-XIOI
     Indication: Spinal muscular atrophy
     Dosage: 41.3 ML/ ONCE/SINGLE (1/1 X10 E14 VECTOR GENOMES PER KG)
     Route: 042
     Dates: start: 20201214
  2. NUSINERSEN [Concomitant]
     Active Substance: NUSINERSEN
     Indication: Product used for unknown indication
     Dosage: 12 MG, QD (X1)
     Route: 065
     Dates: start: 20200713
  3. NUSINERSEN [Concomitant]
     Active Substance: NUSINERSEN
     Dosage: 12 MG, QD ( X1)
     Route: 065
     Dates: start: 20200720
  4. NUSINERSEN [Concomitant]
     Active Substance: NUSINERSEN
     Dosage: 12 MG, QD (X1)
     Route: 065
     Dates: start: 20200727
  5. NUSINERSEN [Concomitant]
     Active Substance: NUSINERSEN
     Dosage: 12 MG, QD (X1)
     Route: 065
     Dates: start: 20200812, end: 20200910
  6. NUSINERSEN [Concomitant]
     Active Substance: NUSINERSEN
     Dosage: UNK
     Route: 065
     Dates: start: 20201214
  7. DEXTROSE AND SODIUM CHLORIDE [Concomitant]
     Active Substance: DEXTROSE MONOHYDRATE\SODIUM CHLORIDE
     Indication: Product used for unknown indication
     Dosage: 32 ML PER HR (5% AND 0.9%)
     Route: 042
     Dates: start: 20200624, end: 20200816
  8. SALINE [Concomitant]
     Active Substance: SODIUM CHLORIDE
     Indication: Product used for unknown indication
     Dosage: UNK ML (0.9 %, 5-80 ML)
     Route: 065
     Dates: start: 20200624, end: 20200813
  9. SALINE [Concomitant]
     Active Substance: SODIUM CHLORIDE
     Dosage: 40 MILLILITRE PER KILOGRAM
     Route: 065
  10. ARISTOCORT [Concomitant]
     Active Substance: TRIAMCINOLONE DIACETATE
     Indication: Product used for unknown indication
     Dosage: UNK (APPLY 1 APPLICATION EXTERNALLY TWICE DAILY AROUND GJT SITE FOR 7 DAYS)
     Route: 065
     Dates: start: 20220803
  11. PERIACTIN [Concomitant]
     Active Substance: CYPROHEPTADINE HYDROCHLORIDE
     Indication: Product used for unknown indication
     Dosage: UNK (2 MG/5ML, TAKE 6.3 ML AT BEDTIME)
     Route: 048
     Dates: start: 20220711
  12. OMEPRAZOLE [Concomitant]
     Active Substance: OMEPRAZOLE
     Indication: Product used for unknown indication
     Dosage: 5 ML, BID
     Route: 048
     Dates: start: 20220707

REACTIONS (28)
  - Dyspnoea [Not Recovered/Not Resolved]
  - Aspiration [Recovered/Resolved]
  - Skin discolouration [Recovered/Resolved]
  - Rhinovirus infection [Recovered/Resolved]
  - Pyrexia [Recovered/Resolved]
  - Pulmonary congestion [Recovered/Resolved]
  - Dyspnoea [Recovered/Resolved]
  - Oxygen saturation decreased [Unknown]
  - Crying [Unknown]
  - COVID-19 pneumonia [Recovering/Resolving]
  - Nausea [Unknown]
  - Pyrexia [Not Recovered/Not Resolved]
  - Vomiting [Recovering/Resolving]
  - Cough [Unknown]
  - Hypoxia [Recovered/Resolved]
  - Retching [Not Recovered/Not Resolved]
  - Rhinorrhoea [Not Recovered/Not Resolved]
  - Faecaloma [Unknown]
  - Choking [Recovered/Resolved]
  - Fatigue [Unknown]
  - Constipation [Unknown]
  - Nasal congestion [Unknown]
  - Erythema [Unknown]
  - Excessive granulation tissue [Unknown]
  - Dehydration [Unknown]
  - Metabolic acidosis [Unknown]
  - Tachycardia [Recovering/Resolving]
  - Hypotonia [Unknown]

NARRATIVE: CASE EVENT DATE: 20210807
